FAERS Safety Report 9129678 (Version 2)
Quarter: 2013Q2

REPORT INFORMATION
  Report Type: Spontaneous
  Country: US (occurrence: US)
  Receive Date: 20130228
  Receipt Date: 20130410
  Transmission Date: 20140414
  Serious: No
  Sender: FDA-Public Use
  Company Number: US-009507513-1302USA013248

PATIENT
  Age: 68 Year
  Sex: Female
  Weight: 80.73 kg

DRUGS (5)
  1. SINGULAIR [Suspect]
     Dosage: 10 MG DAILY
     Route: 048
     Dates: start: 201212, end: 20130105
  2. BENICAR [Concomitant]
  3. PREVACID [Concomitant]
  4. ALBUTEROL SULFATE [Concomitant]
  5. RHINOCORT (BECLOMETHASONE DIPROPIONATE) [Concomitant]

REACTIONS (4)
  - Coagulopathy [Recovered/Resolved]
  - Contusion [Recovered/Resolved]
  - Coagulopathy [Recovered/Resolved]
  - Contusion [Recovered/Resolved]
